FAERS Safety Report 5734939-1 (Version None)
Quarter: 2008Q2

REPORT INFORMATION
  Report Type: 
  Country: None (occurrence: None)
  Receive Date: 20080502
  Receipt Date: 20080205
  Transmission Date: 20081010
  Serious: Yes (Hospitalization)
  Sender: FDA-Public Use
  Company Number: 545734

PATIENT
  Sex: Female

DRUGS (1)
  1. BONIVA [Suspect]
     Indication: OSTEOPOROSIS PROPHYLAXIS
     Dosage: INTRAVENOUS
     Route: 042
     Dates: start: 20080205, end: 20080205

REACTIONS (2)
  - EXTRAVASATION [None]
  - INJECTION SITE ERYTHEMA [None]
